FAERS Safety Report 7678160-9 (Version None)
Quarter: 2011Q3

REPORT INFORMATION
  Report Type: 
  Country: None (occurrence: None)
  Receive Date: 20110811
  Receipt Date: 20101020
  Transmission Date: 20111222
  Serious: No
  Sender: FDA-Public Use
  Company Number: US-MYLANLABS-2010S1018092

PATIENT
  Age: 63 Year
  Sex: Female

DRUGS (20)
  1. FIBER [Concomitant]
  2. BACLOFEN [Suspect]
     Dosage: TID PRN
     Dates: start: 20090106, end: 20100724
  3. VITAMIN B-12 [Concomitant]
     Route: 030
  4. LIPITOR [Concomitant]
  5. VITAMIN TAB [Concomitant]
  6. LISINOPRIL [Concomitant]
  7. LORATADINE [Concomitant]
  8. FISH OIL [Concomitant]
  9. CALCIUM CARBONATE [Concomitant]
  10. BACLOFEN [Suspect]
     Indication: MUSCLE SPASMS
     Dosage: TID PRN
     Dates: start: 20071206, end: 20080107
  11. BACLOFEN [Suspect]
     Indication: PAIN
     Dosage: TID PRN
     Dates: start: 20071206, end: 20080107
  12. CELEBREX [Concomitant]
  13. ASPIRIN [Concomitant]
  14. NORVASC [Concomitant]
  15. ATENOLOL [Concomitant]
  16. STOOL SOFTENER [Concomitant]
  17. BACLOFEN [Suspect]
     Dosage: TID PRN
     Dates: start: 20090106, end: 20100724
  18. CYMBALTA [Concomitant]
  19. SYNTHROID [Concomitant]
  20. CLARITIN /00917501/ [Concomitant]

REACTIONS (7)
  - FATIGUE [None]
  - ADVERSE EVENT [None]
  - DISTURBANCE IN ATTENTION [None]
  - FEELING ABNORMAL [None]
  - FEELING DRUNK [None]
  - DIZZINESS [None]
  - SOMNOLENCE [None]
